FAERS Safety Report 10166899 (Version 2)
Quarter: 2014Q2

REPORT INFORMATION
  Report Type: Spontaneous
  Country: US (occurrence: US)
  Receive Date: 20140512
  Receipt Date: 20140513
  Transmission Date: 20141212
  Serious: No
  Sender: FDA-Public Use
  Company Number: US-PFIZER INC-2014127172

PATIENT
  Sex: 0

DRUGS (1)
  1. SUTENT [Suspect]
     Indication: PANCREATIC CARCINOMA
     Dosage: UNK

REACTIONS (4)
  - Disease progression [Unknown]
  - Pancreatic carcinoma [Unknown]
  - Malaise [Unknown]
  - Decreased appetite [Unknown]
